FAERS Safety Report 7539270-X (Version None)
Quarter: 2011Q2

REPORT INFORMATION
  Report Type: 
  Country: None (occurrence: None)
  Receive Date: 20110610
  Receipt Date: 20110607
  Transmission Date: 20111010
  Serious: Yes (Death)
  Sender: FDA-Public Use
  Company Number: US-AMGEN-USASP2011023144

PATIENT
  Sex: Female
  Weight: 49.433 kg

DRUGS (7)
  1. NPLATE [Suspect]
     Dates: start: 20110315, end: 20110324
  2. PLAQUENIL [Concomitant]
  3. CELEBREX [Concomitant]
  4. PREDNISONE [Concomitant]
  5. METOPROLOL SUCCINATE [Concomitant]
  6. NPLATE [Suspect]
     Indication: IDIOPATHIC THROMBOCYTOPENIC PURPURA
     Dosage: 3 A?G/KG, UNK
     Dates: start: 20110315, end: 20110329
  7. DIOVAN [Concomitant]

REACTIONS (4)
  - COLITIS ULCERATIVE [None]
  - ARTERIOSCLEROSIS CORONARY ARTERY [None]
  - SMALL CELL LUNG CANCER METASTATIC [None]
  - RHEUMATOID ARTHRITIS [None]
